FAERS Safety Report 4881536-6 (Version None)
Quarter: 2006Q1

REPORT INFORMATION
  Report Type: 
  Country: None (occurrence: None)
  Receive Date: 20060116
  Receipt Date: 20060102
  Transmission Date: 20060701
  Serious: Yes (Hospitalization)
  Sender: FDA-Public Use
  Company Number: SE-GLAXOSMITHKLINE-B0405656A

PATIENT
  Age: 83 Year
  Sex: Male

DRUGS (8)
  1. LEUKERAN [Suspect]
     Indication: LYMPHOCYTIC LEUKAEMIA
     Dosage: 2MG PER DAY
     Route: 048
     Dates: start: 20050721, end: 20051027
  2. SELOKEN [Concomitant]
  3. ALVEDON [Concomitant]
  4. FUROSEMIDE [Concomitant]
  5. AMILORID [Concomitant]
  6. IMOVANE [Concomitant]
  7. METFORMIN [Concomitant]
  8. KAVEPENIN [Concomitant]

REACTIONS (6)
  - COUGH [None]
  - GENERAL PHYSICAL HEALTH DETERIORATION [None]
  - INTERSTITIAL LUNG DISEASE [None]
  - PNEUMONITIS [None]
  - PNEUMOTHORAX [None]
  - PYREXIA [None]
